FAERS Safety Report 4645996-8 (Version None)
Quarter: 2005Q2

REPORT INFORMATION
  Report Type: 
  Country: None (occurrence: None)
  Receive Date: 20050427
  Receipt Date: 20050324
  Transmission Date: 20051028
  Serious: Yes (Hospitalization)
  Sender: FDA-Public Use
  Company Number: 200512421US

PATIENT
  Sex: Female
  Weight: 86.4 kg

DRUGS (12)
  1. AMARYL [Suspect]
     Indication: DIABETES MELLITUS
     Route: 048
     Dates: end: 20050329
  2. GLUCOPHAGE [Suspect]
     Dates: end: 20050322
  3. PRAVACHOL [Concomitant]
     Indication: BLOOD CHOLESTEROL
  4. SYNTHROID [Concomitant]
     Indication: THYROID DISORDER
  5. PLAVIX [Concomitant]
     Indication: ANTICOAGULANT THERAPY
  6. CARDIZEM - SLOW RELEASE [Concomitant]
     Indication: CARDIAC DISORDER
  7. ATACAND [Concomitant]
  8. NEURONTIN [Concomitant]
  9. TRICOR [Concomitant]
  10. LANTUS [Concomitant]
     Dosage: DOSE: UNK
  11. NOVOLOG [Concomitant]
     Dosage: DOSE: UNK
  12. CELEBREX [Concomitant]
     Dates: end: 20050322

REACTIONS (5)
  - BLOOD CREATININE INCREASED [None]
  - BLOOD GLUCOSE INCREASED [None]
  - DEHYDRATION [None]
  - HYPOTENSION [None]
  - RENAL DISORDER [None]
